FAERS Safety Report 5519596-1 (Version None)
Quarter: 2007Q4

REPORT INFORMATION
  Report Type: 
  Country: None (occurrence: None)
  Receive Date: 20071116
  Receipt Date: 20071024
  Transmission Date: 20080405
  Serious: Yes (Hospitalization, Other)
  Sender: FDA-Public Use
  Company Number: AU-AMGEN-US241828

PATIENT
  Sex: Female

DRUGS (5)
  1. NEULASTA [Suspect]
     Indication: CHEMOTHERAPY
     Route: 065
  2. TAXOTERE [Concomitant]
     Route: 065
  3. FLUOROURACIL [Concomitant]
     Route: 065
  4. CYCLOPHOSPHAMIDE [Concomitant]
     Route: 065
  5. EPIRUBICIN [Concomitant]
     Route: 065

REACTIONS (5)
  - BONE PAIN [None]
  - CHRONIC MYELOMONOCYTIC LEUKAEMIA [None]
  - INFECTION [None]
  - SURGERY [None]
  - WHITE BLOOD CELL COUNT INCREASED [None]
